FAERS Safety Report 9125557 (Version 1)
Quarter: 2013Q1

REPORT INFORMATION
  Report Type: Report from Study
  Country: DE (occurrence: DE)
  Receive Date: 20130227
  Receipt Date: 20130227
  Transmission Date: 20140127
  Serious: No
  Sender: FDA-Public Use
  Company Number: PHHY2012DE127946

PATIENT
  Sex: Male
  Weight: 108 kg

DRUGS (24)
  1. AMN107 [Suspect]
     Indication: CHRONIC MYELOID LEUKAEMIA
     Dosage: 800 MG PER DAY
     Route: 048
     Dates: start: 20111018
  2. AMN107 [Suspect]
     Dosage: 600 MG PER DAY
     Route: 048
     Dates: start: 20120222
  3. MAGNESIUM VERLA [Concomitant]
     Dates: start: 200712
  4. CELLCEPT [Concomitant]
     Dates: start: 200411
  5. CERTICAN [Concomitant]
     Dates: start: 200411, end: 201208
  6. LOCOL [Concomitant]
     Dates: start: 200610
  7. EZETROL [Concomitant]
     Dates: start: 200903
  8. SPIRONOLACTON [Concomitant]
     Dates: start: 201003
  9. PROCORALAN [Concomitant]
     Dates: start: 200610
  10. LASIX [Concomitant]
     Dates: start: 200910
  11. REKAWAN [Concomitant]
     Dates: start: 200604
  12. CALCIUM [Concomitant]
     Dates: start: 200606
  13. JANUVIA [Concomitant]
     Dates: start: 200903
  14. METFORMIN [Concomitant]
     Dates: start: 200903
  15. ZYLORIC [Concomitant]
     Dates: start: 200610
  16. NEURONTIN [Concomitant]
     Dates: start: 200610
  17. TARGIN [Concomitant]
     Dates: start: 201001
  18. ACTIC [Concomitant]
     Dates: start: 200610
  19. GLUCOPHAGE [Concomitant]
     Dates: start: 201110
  20. ACTRAPID [Concomitant]
     Dates: start: 20111208, end: 20120423
  21. ASS [Concomitant]
     Dates: start: 201203
  22. AMOXICILLIN\CLAVULANATE POTASSIUM [Concomitant]
     Dates: start: 20120301, end: 20120423
  23. DUROGESIC [Concomitant]
     Dates: start: 201208
  24. PROGRAF [Concomitant]
     Dates: start: 201209

REACTIONS (1)
  - Diabetes mellitus [Unknown]
